FAERS Safety Report 12026580 (Version 1)
Quarter: 2016Q1

REPORT INFORMATION
  Report Type: Report from Study
  Country: US (occurrence: US)
  Receive Date: 20160206
  Receipt Date: 20160206
  Transmission Date: 20160526
  Serious: No
  Sender: FDA-Public Use
  Company Number: US-ABBVIE-15K-163-1489168-00

PATIENT
  Sex: Male
  Weight: 113.5 kg

DRUGS (5)
  1. HUMIRA [Suspect]
     Active Substance: ADALIMUMAB
     Indication: COLITIS ULCERATIVE
     Route: 058
  2. VITAMIN D [Concomitant]
     Active Substance: CHOLECALCIFEROL
     Indication: VITAMIN SUPPLEMENTATION
  3. LEVOTHYROXINE. [Concomitant]
     Active Substance: LEVOTHYROXINE
     Indication: THYROID HORMONES DECREASED
  4. ONE A DAY [Concomitant]
     Indication: VITAMIN SUPPLEMENTATION
  5. PRAVASTATIN [Concomitant]
     Active Substance: PRAVASTATIN\PRAVASTATIN SODIUM
     Indication: BLOOD CHOLESTEROL INCREASED

REACTIONS (4)
  - Weight increased [Not Recovered/Not Resolved]
  - Drug ineffective [Not Recovered/Not Resolved]
  - Abdominal distension [Recovered/Resolved]
  - Rectal haemorrhage [Not Recovered/Not Resolved]

NARRATIVE: CASE EVENT DATE: 2015
